FAERS Safety Report 23123396 (Version 7)
Quarter: 2023Q4

REPORT INFORMATION
  Report Type: Spontaneous
  Country: NL (occurrence: NL)
  Receive Date: 20231030
  Receipt Date: 20231213
  Transmission Date: 20240110
  Serious: Yes (Hospitalization, Other)
  Sender: FDA-Public Use
  Company Number: NL-ABBVIE-5454608

PATIENT
  Age: 76 Year
  Sex: Male

DRUGS (13)
  1. ROPINIROLE [Suspect]
     Active Substance: ROPINIROLE
     Indication: Product used for unknown indication
     Dosage: UNK, ONCE A DAY,FORM STRENGTH 20 MILLIGRAM
     Route: 065
  2. CARBIDOPA\LEVODOPA [Suspect]
     Active Substance: CARBIDOPA\LEVODOPA
     Indication: Parkinson^s disease
     Dosage: UNK,MD:7.5ML; CD:3.4ML/H; ED:1.5MLDOSE INCREASED FIRST ADMIN DATE WAS 2023
  3. CARBIDOPA\LEVODOPA [Suspect]
     Active Substance: CARBIDOPA\LEVODOPA
     Dosage: MD:6.5ML; CD:3.1ML/H; ED:1.5ML;, MD:6.5ML; CD:3.1ML/H; ED:1.5ML; DURATION TEXT: REMAINS AT 16 HOURSF
  4. CARBIDOPA\LEVODOPA [Suspect]
     Active Substance: CARBIDOPA\LEVODOPA
     Dosage: MD:7.5ML; CD:3.4ML/H; ED:1.5MLDOSE INCREASED, DURATION TEXT: REMAINS AT 16 HOURS FIRST ADMIN DATE AN
  5. CARBIDOPA\LEVODOPA [Suspect]
     Active Substance: CARBIDOPA\LEVODOPA
     Dosage: UNK, MD:6.5ML; CD:3.1ML/H; ED:1.5ML;LAST ADMIN DATE WAS 2023
     Dates: start: 20230906
  6. CARBIDOPA\LEVODOPA [Suspect]
     Active Substance: CARBIDOPA\LEVODOPA
     Dosage: LAST ADMIN DATE OCT 2023
     Dates: start: 20231002
  7. CARBIDOPA\LEVODOPA [Suspect]
     Active Substance: CARBIDOPA\LEVODOPA
     Dosage: MD:6.5ML; CD:3.1ML/H; ED:1.5ML; REMAINS AT 16 HOURS
     Dates: start: 20231019, end: 20231026
  8. CARBIDOPA\LEVODOPA [Suspect]
     Active Substance: CARBIDOPA\LEVODOPA
     Dosage: UNK
     Dates: start: 20231020, end: 20231026
  9. CARBIDOPA\LEVODOPA [Suspect]
     Active Substance: CARBIDOPA\LEVODOPA
     Dosage: MD:6.5ML; CD:3.1ML/H; ED:1.5ML;
     Dates: start: 20231026
  10. CARBIDOPA\LEVODOPA [Suspect]
     Active Substance: CARBIDOPA\LEVODOPA
     Dosage: MD:6.5ML; CD:3.3ML/H; ED:1.5ML; REMAINS AT 16 HOURS
     Dates: start: 20231026
  11. POLYETHYLENE GLYCOLS [Concomitant]
     Active Substance: POLYETHYLENE GLYCOLS
     Indication: Product used for unknown indication
     Dosage: 2 DOSAGE FORM, ONCE A DAY, 1 SACHET PER DAY, IF NECESSARY, 2 SACHETS.
     Route: 048
  12. SINEMET [Concomitant]
     Active Substance: CARBIDOPA\LEVODOPA
     Indication: Product used for unknown indication
     Dosage: 3 DOSAGE FORM,FORM STRENGTH: 125 MILLIGRAMDURATION TEXT: AT 22:00PM
     Route: 065
  13. SINEMET [Concomitant]
     Active Substance: CARBIDOPA\LEVODOPA
     Dosage: 5 DOSAGE FORM, ONCE A DAY,FORM STRENGTH: 125 MILLIGRAMDURATION TEXT: 7:00AM-12:00PM-18:00PM
     Route: 065

REACTIONS (21)
  - Hospitalisation [Not Recovered/Not Resolved]
  - Helicobacter infection [Not Recovered/Not Resolved]
  - Biopsy [Unknown]
  - Hallucination [Recovered/Resolved]
  - On and off phenomenon [Not Recovered/Not Resolved]
  - Dyskinesia [Recovered/Resolved]
  - Tremor [Not Recovered/Not Resolved]
  - Adverse drug reaction [Not Recovered/Not Resolved]
  - Fall [Recovered/Resolved]
  - Musculoskeletal stiffness [Not Recovered/Not Resolved]
  - Bradykinesia [Not Recovered/Not Resolved]
  - Mobility decreased [Not Recovered/Not Resolved]
  - Tension [Not Recovered/Not Resolved]
  - Unevaluable event [Recovered/Resolved]
  - Urinary tract infection [Not Recovered/Not Resolved]
  - Loss of personal independence in daily activities [Not Recovered/Not Resolved]
  - Pruritus [Not Recovered/Not Resolved]
  - Drug titration error [Not Recovered/Not Resolved]
  - Therapeutic product effect incomplete [Not Recovered/Not Resolved]
  - Drug ineffective [Not Recovered/Not Resolved]
  - Mucosal disorder [Unknown]

NARRATIVE: CASE EVENT DATE: 20230101
